FAERS Safety Report 21647608 (Version 1)
Quarter: 2022Q4

REPORT INFORMATION
  Report Type: Spontaneous
  Country: US (occurrence: US)
  Receive Date: 20221128
  Receipt Date: 20221128
  Transmission Date: 20230113
  Serious: No
  Sender: FDA-Public Use
  Company Number: US-GSK-US2022174190

PATIENT
  Sex: Male

DRUGS (1)
  1. NUCALA [Suspect]
     Active Substance: MEPOLIZUMAB
     Indication: Sinus polyp degeneration
     Dosage: UNK NUCALA PRE-FILLED SYRINGE

REACTIONS (1)
  - Nasopharyngitis [Unknown]
